FAERS Safety Report 21375608 (Version 1)
Quarter: 2022Q3

REPORT INFORMATION
  Report Type: Spontaneous
  Country: DE (occurrence: DE)
  Receive Date: 20220926
  Receipt Date: 20220926
  Transmission Date: 20221026
  Serious: Yes (Hospitalization)
  Sender: FDA-Public Use
  Company Number: DE-ADRED-07896-01

PATIENT
  Age: 78 Year
  Sex: Male

DRUGS (5)
  1. INSULIN LISPRO [Suspect]
     Active Substance: INSULIN LISPRO
     Indication: Product used for unknown indication
     Dosage: 50 U, EACH MORNING
     Route: 065
  2. INSULIN LISPRO [Suspect]
     Active Substance: INSULIN LISPRO
     Dosage: 40 U, EACH EVENING
     Route: 065
  3. PANTOPRAZOLE [Concomitant]
     Active Substance: PANTOPRAZOLE
     Indication: Product used for unknown indication
     Dosage: UNK UNK, DAILY
  4. ATORVASTATIN [Concomitant]
     Active Substance: ATORVASTATIN
     Indication: Product used for unknown indication
     Dosage: UNK UNK, DAILY
  5. PANCREASE [PANCREATIN] [Concomitant]
     Indication: Product used for unknown indication
     Dosage: UNK UNK, BID

REACTIONS (7)
  - Renal impairment [Unknown]
  - General physical health deterioration [Unknown]
  - Personality change [Unknown]
  - Condition aggravated [Unknown]
  - Agitation [Unknown]
  - Disorientation [Unknown]
  - Hypoglycaemia [Unknown]
